FAERS Safety Report 9304126 (Version 1)
Quarter: 2013Q2

REPORT INFORMATION
  Report Type: Spontaneous
  Country: US (occurrence: US)
  Receive Date: 20130522
  Receipt Date: 20130522
  Transmission Date: 20140414
  Serious: Yes (Hospitalization, Other)
  Sender: FDA-Public Use
  Company Number: US-COVIDIEN/TYCO HEALTHCARE/MALLINCKRODT-T201301563

PATIENT
  Age: 15 Year
  Sex: Female

DRUGS (1)
  1. GABLOFEN [Suspect]
     Indication: MUSCLE SPASTICITY
     Dosage: 1494.4 MCG/DAY
     Route: 037

REACTIONS (6)
  - Loss of consciousness [Recovered/Resolved]
  - Back pain [Unknown]
  - Muscular weakness [Unknown]
  - Hypotonia [Recovered/Resolved]
  - Drug effect decreased [Unknown]
  - Device failure [Recovered/Resolved]
